FAERS Safety Report 23985831 (Version 2)
Quarter: 2024Q3

REPORT INFORMATION
  Report Type: Report from Study
  Country: CA (occurrence: CA)
  Receive Date: 20240618
  Receipt Date: 20240722
  Transmission Date: 20241016
  Serious: Yes (Other)
  Sender: OTSUKA
  Company Number: CA-OTSUKA-2023_001050

PATIENT
  Sex: Male

DRUGS (4)
  1. CEDAZURIDINE\DECITABINE [Suspect]
     Active Substance: CEDAZURIDINE\DECITABINE
     Indication: Myelodysplastic syndrome
     Dosage: UNK
     Route: 065
     Dates: start: 20221214
  2. CEDAZURIDINE\DECITABINE [Suspect]
     Active Substance: CEDAZURIDINE\DECITABINE
     Dosage: 4 PILLS (35 MG DECITABINE AND 100 MG CEDAZURIDINE) PER CYCLE
     Route: 065
  3. CEDAZURIDINE\DECITABINE [Suspect]
     Active Substance: CEDAZURIDINE\DECITABINE
     Dosage: 3 PILLS (35 MG DECITABINE AND 100 MG CEDAZURIDINE) PER CYCLE
     Route: 065
  4. CEDAZURIDINE\DECITABINE [Suspect]
     Active Substance: CEDAZURIDINE\DECITABINE
     Dosage: 2 PILLS (35 MG DECITABINE AND 100 MG CEDAZURIDINE) PER CYCLE FOR 5 WEEKS
     Route: 065
     Dates: start: 20230526, end: 202405

REACTIONS (8)
  - Full blood count abnormal [Not Recovered/Not Resolved]
  - Neutropenia [Unknown]
  - Eating disorder symptom [Recovered/Resolved]
  - Neutrophil count abnormal [Unknown]
  - Glossodynia [Recovered/Resolved]
  - Nasopharyngitis [Unknown]
  - Inappropriate schedule of product administration [Unknown]
  - Drug ineffective [Unknown]
